FAERS Safety Report 6267997-9 (Version None)
Quarter: 2009Q3

REPORT INFORMATION
  Report Type: 
  Country: None (occurrence: None)
  Receive Date: 20090713
  Receipt Date: 20090706
  Transmission Date: 20100115
  Serious: Yes (Other)
  Sender: FDA-Public Use
  Company Number: 2009008182

PATIENT

DRUGS (1)
  1. TREANDA [Suspect]
     Dosage: (70 MG/M2,RECEIVED 2 CYCLES),INTRAVENOUS
     Route: 042

REACTIONS (2)
  - ANAEMIA [None]
  - APLASIA PURE RED CELL [None]
